FAERS Safety Report 8101196-0 (Version None)
Quarter: 2012Q1

REPORT INFORMATION
  Report Type: 
  Country: None (occurrence: None)
  Receive Date: 20120129
  Receipt Date: 20111013
  Transmission Date: 20120608
  Serious: No
  Sender: FDA-Public Use
  Company Number: US-ABBOTT-11P-163-0863906-00

PATIENT
  Age: 53 Year
  Sex: Female

DRUGS (7)
  1. SYNTHROID [Concomitant]
     Indication: HYPOTHYROIDISM
  2. IBUPROFEN [Concomitant]
     Indication: PSORIATIC ARTHROPATHY
  3. SINGULAIR [Concomitant]
     Indication: HYPERSENSITIVITY
  4. ENJUVIA [Concomitant]
     Indication: HORMONE REPLACEMENT THERAPY
  5. HUMIRA [Suspect]
     Indication: PSORIATIC ARTHROPATHY
     Dates: start: 20110915
  6. IBUPROFEN [Concomitant]
     Indication: PAIN
  7. CYMBALTA [Concomitant]
     Indication: PSORIATIC ARTHROPATHY

REACTIONS (1)
  - RASH [None]
